FAERS Safety Report 9435202 (Version 2)
Quarter: 2013Q3

REPORT INFORMATION
  Report Type: Spontaneous
  Country: TR (occurrence: TR)
  Receive Date: 20130801
  Receipt Date: 20130813
  Transmission Date: 20140515
  Serious: Yes (Congenital Anomaly, Other)
  Sender: FDA-Public Use
  Company Number: TR-ASTELLAS-2013EU006618

PATIENT
  Sex: Male
  Weight: 2.9 kg

DRUGS (1)
  1. PROGRAF [Suspect]
     Indication: FOETAL EXPOSURE DURING PREGNANCY
     Dosage: 2 U, BID
     Route: 064

REACTIONS (2)
  - Ventricular septal defect [Unknown]
  - Premature baby [Recovering/Resolving]
